FAERS Safety Report 8902690 (Version 7)
Quarter: 2014Q2

REPORT INFORMATION
  Report Type: Spontaneous
  Country: US (occurrence: US)
  Receive Date: 20121112
  Receipt Date: 20140521
  Transmission Date: 20141212
  Serious: Yes (Hospitalization, Disabling, Other)
  Sender: FDA-Public Use
  Company Number: US-009507513-1211USA004328

PATIENT
  Sex: Female
  Weight: 70.75 kg

DRUGS (10)
  1. FOSAMAX [Suspect]
     Indication: OSTEOPOROSIS
     Dosage: 70 MG, UNK
     Route: 048
     Dates: start: 20061017, end: 20100810
  2. ALENDRONATE SODIUM [Suspect]
     Indication: OSTEOPOROSIS
     Dosage: 70 MG, UNK
     Route: 048
     Dates: start: 20080407, end: 201101
  3. LORATADINE [Concomitant]
     Indication: HYPERSENSITIVITY
     Dosage: UNK
     Dates: start: 200601, end: 201004
  4. FLUTICASONE [Concomitant]
     Indication: HYPERSENSITIVITY
     Dosage: UNK
     Dates: start: 200603, end: 201210
  5. LEVOTHROID [Concomitant]
     Indication: HYPOTHYROIDISM
     Dosage: UNK
     Dates: start: 200801, end: 201202
  6. PROPRANOLOL HYDROCHLORIDE [Concomitant]
     Indication: HYPERTENSION
     Dosage: UNK
     Dates: start: 200406, end: 201103
  7. LISINOPRIL [Concomitant]
     Indication: HYPERTENSION
     Dosage: UNK
     Dates: start: 200801
  8. EFFEXOR [Concomitant]
     Indication: DEPRESSION
     Dosage: 75 MG, QD
     Dates: start: 200512, end: 201005
  9. ZOMIG [Concomitant]
     Indication: HEADACHE
     Dosage: UNK
     Dates: start: 200601
  10. LEVOTHYROXINE SODIUM [Concomitant]
     Indication: HYPOTHYROIDISM

REACTIONS (50)
  - Intramedullary rod insertion [Recovered/Resolved]
  - Tonsillectomy [Unknown]
  - Ligament operation [Unknown]
  - Deafness [Unknown]
  - Arthroscopy [Unknown]
  - Cyst removal [Unknown]
  - Cyst removal [Unknown]
  - Arthropathy [Not Recovered/Not Resolved]
  - Back disorder [Not Recovered/Not Resolved]
  - Femur fracture [Recovering/Resolving]
  - Fall [Unknown]
  - Device malfunction [Unknown]
  - Cystitis [Unknown]
  - Arthritis [Unknown]
  - Anaemia [Unknown]
  - Transfusion [Unknown]
  - Fatigue [Unknown]
  - Pollakiuria [Unknown]
  - Muscular weakness [Unknown]
  - Confusional state [Unknown]
  - Amnesia [Unknown]
  - Skin discolouration [Unknown]
  - Stress [Unknown]
  - Limb asymmetry [Not Recovered/Not Resolved]
  - Hand fracture [Unknown]
  - Fibromyalgia [Unknown]
  - Intervertebral disc disorder [Unknown]
  - Deep vein thrombosis [Unknown]
  - Anaemia [Unknown]
  - Anxiety [Unknown]
  - Pain [Unknown]
  - Gastric pH decreased [Unknown]
  - Depression [Unknown]
  - Insomnia [Unknown]
  - Transfusion [Recovered/Resolved]
  - Lyme disease [Unknown]
  - Hypoaesthesia [Unknown]
  - Weight decreased [Unknown]
  - Sleep disorder [Unknown]
  - Snoring [Unknown]
  - Thirst [Unknown]
  - Nocturia [Unknown]
  - Rheumatoid arthritis [Unknown]
  - Blood alkaline phosphatase increased [Unknown]
  - Blood parathyroid hormone increased [Unknown]
  - Hyperparathyroidism secondary [Unknown]
  - Temperature intolerance [Unknown]
  - Accidental overdose [Unknown]
  - Back pain [Unknown]
  - Gastrooesophageal reflux disease [Unknown]
